FAERS Safety Report 8835085 (Version 4)
Quarter: 2013Q1

REPORT INFORMATION
  Report Type: Report from Study
  Country: RU (occurrence: RU)
  Receive Date: 20121010
  Receipt Date: 20130128
  Transmission Date: 20140127
  Serious: Yes (Death, Other)
  Sender: FDA-Public Use
  Company Number: RU-ROCHE-1143272

PATIENT
  Age: 54 Year
  Sex: Male
  Weight: 90 kg

DRUGS (6)
  1. BEVACIZUMAB [Suspect]
     Indication: RECTOSIGMOID CANCER
     Route: 042
     Dates: start: 20120319, end: 20121106
  2. BEVACIZUMAB [Suspect]
     Indication: COLON CANCER
  3. OXALIPLATIN [Concomitant]
     Indication: RECTOSIGMOID CANCER
     Route: 041
     Dates: start: 20120926, end: 20121106
  4. OXALIPLATIN [Concomitant]
     Indication: COLON CANCER
  5. IRINOTECAN [Concomitant]
     Indication: RECTOSIGMOID CANCER
     Route: 065
     Dates: start: 20120319, end: 20120704
  6. IRINOTECAN [Concomitant]
     Indication: COLON CANCER

REACTIONS (2)
  - Disease progression [Fatal]
  - Ascites [Unknown]
